FAERS Safety Report 9016687 (Version 1)
Quarter: 2013Q1

REPORT INFORMATION
  Report Type: Spontaneous
  Country: FR (occurrence: FR)
  Receive Date: 20130116
  Receipt Date: 20130116
  Transmission Date: 20140127
  Serious: Yes (Hospitalization)
  Sender: FDA-Public Use
  Company Number: FR-SANOFI-AVENTIS-2013SA001988

PATIENT
  Age: 82 Year
  Sex: Male

DRUGS (8)
  1. RIFADINE [Suspect]
     Indication: PRODUCT USED FOR UNKNOWN INDICATION
     Route: 048
     Dates: start: 20120806, end: 20121025
  2. AMOXICILLIN [Suspect]
     Indication: PRODUCT USED FOR UNKNOWN INDICATION
     Route: 065
     Dates: start: 20120806, end: 20121025
  3. OFLOXACIN [Suspect]
     Indication: PRODUCT USED FOR UNKNOWN INDICATION
     Route: 065
     Dates: start: 20120806, end: 20121025
  4. CALCIPARIN [Concomitant]
     Dates: end: 20121018
  5. KARDEGIC [Concomitant]
  6. PLAVIX [Concomitant]
  7. PARIET [Concomitant]
  8. LASILIX [Concomitant]

REACTIONS (1)
  - Eosinophilia [Not Recovered/Not Resolved]
